FAERS Safety Report 7963800-7 (Version None)
Quarter: 2011Q4

REPORT INFORMATION
  Report Type: 
  Country: None (occurrence: None)
  Receive Date: 20111208
  Receipt Date: 20111120
  Transmission Date: 20120403
  Serious: No
  Sender: FDA-Public Use
  Company Number: US-BAYER-2011-112851

PATIENT
  Age: 85 Year
  Sex: Female
  Weight: 69 kg

DRUGS (5)
  1. ALEVE (CAPLET) [Suspect]
     Indication: MUSCULOSKELETAL DISCOMFORT
     Dosage: 1 DF, BID
     Route: 048
     Dates: start: 20101123
  2. ALEVE (CAPLET) [Suspect]
     Indication: ANALGESIC THERAPY
  3. ANTIHYPERTENSIVES [Concomitant]
     Indication: BLOOD PRESSURE ABNORMAL
  4. ALEVE (CAPLET) [Suspect]
     Indication: LIMB DISCOMFORT
  5. CHOLESTEROL [Concomitant]
     Indication: BLOOD CHOLESTEROL INCREASED

REACTIONS (3)
  - LIMB DISCOMFORT [None]
  - NO ADVERSE EVENT [None]
  - MUSCULOSKELETAL DISCOMFORT [None]
